FAERS Safety Report 5482707-0 (Version None)
Quarter: 2007Q4

REPORT INFORMATION
  Report Type: 
  Country: None (occurrence: None)
  Receive Date: 20071011
  Receipt Date: 20070929
  Transmission Date: 20080405
  Serious: Yes (Hospitalization)
  Sender: FDA-Public Use
  Company Number: PFIZER INC-2007081101

PATIENT
  Age: 70 Year
  Sex: Female
  Weight: 66.7 kg

DRUGS (1)
  1. SUTENT [Suspect]
     Indication: FOLLICULAR THYROID CANCER
     Route: 048

REACTIONS (2)
  - GASTRITIS [None]
  - MUCOSAL INFLAMMATION [None]
